FAERS Safety Report 9677975 (Version 3)
Quarter: 2015Q1

REPORT INFORMATION
  Report Type: Spontaneous
  Country: US (occurrence: US)
  Receive Date: 20131108
  Receipt Date: 20150324
  Transmission Date: 20150721
  Serious: Yes (Hospitalization)
  Sender: FDA-Public Use
  Company Number: US-BAYER-2013-134658

PATIENT
  Age: 27 Year
  Sex: Female
  Weight: 68.27 kg

DRUGS (25)
  1. LIDODERM [Concomitant]
     Active Substance: LIDOCAINE
  2. INDERAL LA [Concomitant]
     Active Substance: PROPRANOLOL HYDROCHLORIDE
     Dosage: 120 MG, DAILY
     Route: 048
  3. ALPRAZOLAM. [Concomitant]
     Active Substance: ALPRAZOLAM
     Dosage: 0.5 MG, UNK
  4. TAPAZOLE [Concomitant]
     Active Substance: METHIMAZOLE
     Dosage: 30 MG, UNK
     Route: 048
  5. SYNTHROID [Concomitant]
     Active Substance: LEVOTHYROXINE SODIUM
  6. KEPPRA [Concomitant]
     Active Substance: LEVETIRACETAM
  7. CRESTOR [Concomitant]
     Active Substance: ROSUVASTATIN CALCIUM
  8. COLACE [Concomitant]
     Active Substance: DOCUSATE SODIUM
  9. FLUCONAZOLE. [Concomitant]
     Active Substance: FLUCONAZOLE
  10. VALPROIC ACID. [Concomitant]
     Active Substance: VALPROIC ACID
  11. NEXIUM [Concomitant]
     Active Substance: ESOMEPRAZOLE MAGNESIUM
  12. XANAX [Concomitant]
     Active Substance: ALPRAZOLAM
     Dosage: 0.5 MG, UNK
  13. AVELOX [Concomitant]
     Active Substance: MOXIFLOXACIN HYDROCHLORIDE
  14. KENALOG [Concomitant]
     Active Substance: TRIAMCINOLONE ACETONIDE
     Indication: KELOID SCAR
     Dosage: 40 MG, UNK
     Route: 023
     Dates: start: 20080501
  15. PREDNISONE. [Concomitant]
     Active Substance: PREDNISONE
  16. PROPYLTHIOURACIL. [Concomitant]
     Active Substance: PROPYLTHIOURACIL
  17. FERROUS SULFATE [Concomitant]
     Active Substance: FERROUS SULFATE\FERROUS SULFATE, DRIED
  18. PRANDIN [Concomitant]
     Active Substance: REPAGLINIDE
  19. LEVOTHYROXINE [Concomitant]
     Active Substance: LEVOTHYROXINE
  20. DIFLUCAN [Concomitant]
     Active Substance: FLUCONAZOLE
     Dosage: 150 MG, UNK
     Dates: start: 20080501
  21. YASMIN [Suspect]
     Active Substance: DROSPIRENONE\ETHINYL ESTRADIOL
     Indication: ACNE
     Dosage: UNK
     Dates: start: 200803, end: 200805
  22. METHYLPREDNISOLONE. [Concomitant]
     Active Substance: METHYLPREDNISOLONE
  23. DEPAKOTE [Concomitant]
     Active Substance: DIVALPROEX SODIUM
  24. TRAMADOL [Concomitant]
     Active Substance: TRAMADOL
  25. CYMBALTA [Concomitant]
     Active Substance: DULOXETINE HYDROCHLORIDE

REACTIONS (3)
  - Pain [None]
  - Cerebrovascular accident [None]
  - Injury [None]

NARRATIVE: CASE EVENT DATE: 20080519
